FAERS Safety Report 7908190-0 (Version None)
Quarter: 2011Q4

REPORT INFORMATION
  Report Type: 
  Country: None (occurrence: None)
  Receive Date: 20111111
  Receipt Date: 20111102
  Transmission Date: 20120403
  Serious: No
  Sender: FDA-Public Use
  Company Number: US-BIOGENIDEC-2011BI042167

PATIENT
  Sex: Female

DRUGS (2)
  1. TYSABRI [Suspect]
     Indication: MULTIPLE SCLEROSIS
     Route: 042
     Dates: start: 20100803
  2. TYSABRI [Suspect]
     Route: 042

REACTIONS (5)
  - MULTIPLE SCLEROSIS [None]
  - FATIGUE [None]
  - ANAEMIA [None]
  - HYPOTENSION [None]
  - DEHYDRATION [None]
